FAERS Safety Report 6882448-9 (Version None)
Quarter: 2010Q3

REPORT INFORMATION
  Report Type: 
  Country: None (occurrence: None)
  Receive Date: 20100729
  Receipt Date: 20100721
  Transmission Date: 20110219
  Serious: Yes (Hospitalization)
  Sender: FDA-Public Use
  Company Number: US-BRISTOL-MYERS SQUIBB COMPANY-15206303

PATIENT
  Age: 68 Year
  Sex: Male
  Weight: 75 kg

DRUGS (1)
  1. HYDREA [Suspect]
     Indication: MYELOFIBROSIS
     Route: 048
     Dates: end: 20100624

REACTIONS (1)
  - RENAL FAILURE [None]
